FAERS Safety Report 4930338-0 (Version None)
Quarter: 2006Q1

REPORT INFORMATION
  Report Type: 
  Country: None (occurrence: None)
  Receive Date: 20060302
  Receipt Date: 20060221
  Transmission Date: 20060701
  Serious: Yes (Other)
  Sender: FDA-Public Use
  Company Number: BR-JNJFOC-20060206031

PATIENT
  Sex: Male

DRUGS (1)
  1. ULTRACET [Suspect]
     Route: 048

REACTIONS (2)
  - JUDGEMENT IMPAIRED [None]
  - MOVEMENT DISORDER [None]
